FAERS Safety Report 9706804 (Version 1)
Quarter: 2013Q4

REPORT INFORMATION
  Report Type: Report from Study
  Country: BR (occurrence: BR)
  Receive Date: 20131125
  Receipt Date: 20131125
  Transmission Date: 20140711
  Serious: Yes (Other)
  Sender: FDA-Public Use
  Company Number: PHHY2013BR134749

PATIENT
  Sex: Female
  Weight: 40 kg

DRUGS (5)
  1. ACLASTA [Suspect]
     Indication: OSTEOPOROSIS
     Dosage: 5 MG, UNK
     Route: 042
     Dates: start: 2012
  2. ALENTHUS [Concomitant]
     Dosage: UNK
     Dates: start: 2003
  3. ZOLPIDEM [Concomitant]
     Dosage: UNK
     Dates: start: 2003
  4. APRAZ [Concomitant]
     Dosage: UNK
     Dates: start: 2003
  5. TROPINAL [Concomitant]
     Dosage: UNK

REACTIONS (2)
  - Diverticulum intestinal [Recovering/Resolving]
  - Pain [Unknown]
